FAERS Safety Report 6872120-3 (Version None)
Quarter: 2010Q3

REPORT INFORMATION
  Report Type: 
  Country: None (occurrence: None)
  Receive Date: 20100723
  Receipt Date: 20100713
  Transmission Date: 20110219
  Serious: Yes (Hospitalization)
  Sender: FDA-Public Use
  Company Number: FI-PFIZER INC-2010073252

PATIENT
  Age: 44 Year
  Sex: Female

DRUGS (3)
  1. SALAZOPYRIN [Suspect]
     Indication: RHEUMATOID ARTHRITIS
     Dosage: 500 MG TWO TIMES DAILY
     Route: 048
     Dates: start: 20100423, end: 20100501
  2. PREDNISOLON [Concomitant]
     Dosage: 5 MG ONCE DAILY
     Route: 048
     Dates: end: 20100527
  3. PRONAXEN [Concomitant]
     Dosage: 500 MG AS NEEDED
     Route: 048
     Dates: start: 20100423

REACTIONS (1)
  - PHOTOSENSITIVITY REACTION [None]
